FAERS Safety Report 15610983 (Version 1)
Quarter: 2018Q4

REPORT INFORMATION
  Report Type: Spontaneous
  Country: US (occurrence: US)
  Receive Date: 20181113
  Receipt Date: 20181113
  Transmission Date: 20190205
  Serious: No
  Sender: FDA-Public Use
  Company Number: US-ROCHE-2158093

PATIENT
  Age: 59 Year
  Sex: Female
  Weight: 64.01 kg

DRUGS (2)
  1. TAXOL [Concomitant]
     Active Substance: PACLITAXEL
     Dosage: ONGOING NO
     Route: 065
     Dates: end: 20171212
  2. HERCEPTIN [Suspect]
     Active Substance: TRASTUZUMAB
     Indication: OESTROGEN RECEPTOR POSITIVE BREAST CANCER
     Route: 065
     Dates: start: 20170911

REACTIONS (7)
  - Blood creatine phosphokinase increased [Unknown]
  - Arthralgia [Not Recovered/Not Resolved]
  - Neuropathy peripheral [Unknown]
  - Alopecia [Unknown]
  - Arthralgia [Unknown]
  - Insomnia [Unknown]
  - Muscle disorder [Unknown]

NARRATIVE: CASE EVENT DATE: 201801
